FAERS Safety Report 5872115-2 (Version None)
Quarter: 2008Q3

REPORT INFORMATION
  Report Type: 
  Country: None (occurrence: None)
  Receive Date: 20080905
  Receipt Date: 20080905
  Transmission Date: 20090109
  Serious: Yes (Disabling)
  Sender: FDA-Public Use
  Company Number: B0535429A

PATIENT
  Age: 67 Year
  Sex: Male

DRUGS (16)
  1. EPIVIR [Suspect]
     Indication: ACQUIRED IMMUNODEFICIENCY SYNDROME
     Dosage: 150MG TWICE PER DAY
     Route: 048
     Dates: start: 20080610
  2. DOXIL [Suspect]
     Indication: KAPOSI'S SARCOMA
     Route: 042
     Dates: start: 20080421, end: 20080421
  3. DOXIL [Suspect]
     Route: 042
     Dates: start: 20080512, end: 20080512
  4. DOXIL [Suspect]
     Route: 042
     Dates: start: 20080602, end: 20080602
  5. DOXIL [Suspect]
     Route: 042
     Dates: start: 20080623, end: 20080623
  6. ZIAGEN [Concomitant]
     Indication: ACQUIRED IMMUNODEFICIENCY SYNDROME
     Dosage: 300MG TWICE PER DAY
     Route: 048
     Dates: start: 20080610
  7. KALETRA [Concomitant]
     Indication: ACQUIRED IMMUNODEFICIENCY SYNDROME
     Route: 048
     Dates: start: 20080610
  8. CLARITHROMYCIN [Concomitant]
     Indication: MYCOBACTERIUM AVIUM COMPLEX INFECTION
     Route: 048
     Dates: start: 20080503
  9. ETHAMBUTOL HCL [Concomitant]
     Indication: MYCOBACTERIUM AVIUM COMPLEX INFECTION
     Dosage: 250MG THREE TIMES PER DAY
     Route: 048
     Dates: start: 20080503
  10. UNKNOWN DRUG [Concomitant]
     Indication: MYCOBACTERIUM AVIUM COMPLEX INFECTION
     Dosage: 300MG PER DAY
     Route: 065
     Dates: start: 20080503, end: 20080610
  11. UNKNOWN DRUG [Concomitant]
     Route: 065
     Dates: start: 20080611
  12. UNKNOWN DRUG [Concomitant]
     Indication: CEREBRAL TOXOPLASMOSIS
     Dosage: 100MG PER DAY
     Route: 065
     Dates: start: 20080418, end: 20080604
  13. UNKNOWN DRUG [Concomitant]
     Dosage: 1000MG FOUR TIMES PER DAY
     Route: 065
     Dates: start: 20080418, end: 20080604
  14. LEUCOVORIN CALCIUM [Concomitant]
     Indication: CEREBRAL TOXOPLASMOSIS
     Dosage: 25MG PER DAY
     Route: 065
     Dates: start: 20080418, end: 20080604
  15. UNKNOWN DRUG [Concomitant]
     Dosage: 750MG TWICE PER DAY
     Route: 065
     Dates: start: 20080604
  16. CELECOXIB [Concomitant]
     Indication: ARTHRALGIA
     Dosage: 100MG TWICE PER DAY
     Route: 048
     Dates: start: 20080524, end: 20080729

REACTIONS (2)
  - COLITIS [None]
  - DIARRHOEA [None]
